FAERS Safety Report 14230031 (Version 1)
Quarter: 2017Q4

REPORT INFORMATION
  Report Type: Report from Study
  Country: CA (occurrence: CA)
  Receive Date: 20171128
  Receipt Date: 20171128
  Transmission Date: 20180321
  Serious: Yes (Other)
  Sender: FDA-Public Use
  Company Number: CA-JNJFOC-20171128221

PATIENT
  Sex: Female

DRUGS (1)
  1. STELARA [Suspect]
     Active Substance: USTEKINUMAB
     Indication: CROHN^S DISEASE
     Dosage: ON WEEK 0
     Route: 042
     Dates: start: 20171016

REACTIONS (2)
  - Nephrolithiasis [Unknown]
  - Anal abscess [Unknown]

NARRATIVE: CASE EVENT DATE: 2017
